FAERS Safety Report 18401932 (Version 3)
Quarter: 2020Q4

REPORT INFORMATION
  Report Type: Report from Study
  Country: MA (occurrence: MA)
  Receive Date: 20201019
  Receipt Date: 20201101
  Transmission Date: 20210114
  Serious: Yes (Hospitalization)
  Sender: FDA-Public Use
  Company Number: PHHY2019MA155746

PATIENT
  Age: 46 Year
  Sex: Female

DRUGS (2)
  1. COSENTYX [Suspect]
     Active Substance: SECUKINUMAB
     Indication: PSORIATIC ARTHROPATHY
     Dosage: 150 MG, QW
     Route: 058
     Dates: start: 20190618
  2. COSENTYX [Suspect]
     Active Substance: SECUKINUMAB
     Dosage: 300 MG, QMO
     Route: 058

REACTIONS (17)
  - Nausea [Recovered/Resolved]
  - Acne [Unknown]
  - Aggression [Recovered/Resolved]
  - Oral pain [Unknown]
  - Pain in extremity [Unknown]
  - Paraesthesia [Unknown]
  - Mouth swelling [Unknown]
  - Oral discomfort [Unknown]
  - Arthralgia [Unknown]
  - Menstrual disorder [Not Recovered/Not Resolved]
  - Pyrexia [Recovering/Resolving]
  - Gait disturbance [Unknown]
  - Arthralgia [Recovered/Resolved]
  - Abscess oral [Recovered/Resolved]
  - Visual impairment [Recovered/Resolved]
  - Visual impairment [Unknown]
  - Neck pain [Unknown]

NARRATIVE: CASE EVENT DATE: 20190630
